FAERS Safety Report 23315425 (Version 1)
Quarter: 2023Q4

REPORT INFORMATION
  Report Type: Spontaneous
  Country: US (occurrence: None)
  Receive Date: 20231218
  Receipt Date: 20231218
  Transmission Date: 20240110
  Serious: Yes (Life-Threatening, Disabling)
  Sender: FDA-Public Use
  Company Number: None

PATIENT
  Age: 64 Year
  Sex: Female
  Weight: 70.76 kg

DRUGS (7)
  1. ATORVASTATIN [Suspect]
     Active Substance: ATORVASTATIN
     Indication: Blood cholesterol
     Dosage: FREQUENCY : DAILY;?
     Route: 048
     Dates: start: 201906, end: 202305
  2. METFORMIN [Concomitant]
     Active Substance: METFORMIN HYDROCHLORIDE
  3. LOSARTAN [Concomitant]
     Active Substance: LOSARTAN
  4. PREDNISONE [Concomitant]
     Active Substance: PREDNISONE
  5. HUMAN IMMUNOGLOBULIN G [Concomitant]
     Active Substance: HUMAN IMMUNOGLOBULIN G
  6. BIOTIN [Concomitant]
     Active Substance: BIOTIN
  7. One a Day Womens gummy vitamins [Concomitant]

REACTIONS (4)
  - Muscular weakness [None]
  - Fatigue [None]
  - Musculoskeletal stiffness [None]
  - Immune-mediated myositis [None]

NARRATIVE: CASE EVENT DATE: 20230201
